FAERS Safety Report 9620354 (Version 1)
Quarter: 2013Q4

REPORT INFORMATION
  Report Type: Spontaneous
  Country: US (occurrence: US)
  Receive Date: 20131014
  Receipt Date: 20131014
  Transmission Date: 20140711
  Serious: Yes (Hospitalization)
  Sender: FDA-Public Use
  Company Number: US-009507513-1310USA001591

PATIENT
  Age: 63 Year
  Sex: Female
  Weight: 112.2 kg

DRUGS (28)
  1. ZOCOR [Suspect]
     Route: 048
  2. ENBREL [Suspect]
     Indication: RHEUMATOID ARTHRITIS
     Dosage: 50 MG, QW
     Route: 058
     Dates: end: 2013
  3. ENBREL [Suspect]
     Dosage: 50 MG, QW
     Route: 058
     Dates: start: 2013
  4. ULTRAM [Suspect]
  5. METHOTREXATE [Suspect]
  6. IMURAN (AZATHIOPRINE SODIUM) [Suspect]
  7. TRAZODONE HYDROCHLORIDE [Suspect]
  8. LIPITOR [Suspect]
     Dosage: 20 MG, QD
  9. CRESTOR [Suspect]
  10. SULFA (SULFANILAMIDE) [Suspect]
     Dosage: UNK
  11. ARAVA [Suspect]
  12. AMBIEN [Concomitant]
  13. LASIX (FUROSEMIDE) [Concomitant]
  14. ULTRACET [Concomitant]
  15. COUMADIN [Concomitant]
  16. LYRICA [Concomitant]
  17. WELLBUTRIN [Concomitant]
  18. CYCLOBENZAPRINE HYDROCHLORIDE [Concomitant]
  19. CALCIUM (UNSPECIFIED) [Concomitant]
  20. CELEXA [Concomitant]
  21. FOLIC ACID [Concomitant]
  22. FLEXERIL [Concomitant]
  23. CITALOPRAM HYDROBROMIDE [Concomitant]
  24. CITRACAL + D [Concomitant]
  25. PLAQUENIL [Concomitant]
  26. ZOLPIDEM TARTRATE [Concomitant]
  27. CYANOCOBALAMIN [Concomitant]
  28. FUROSEMIDE [Concomitant]

REACTIONS (48)
  - Joint swelling [Unknown]
  - Local swelling [Unknown]
  - Pneumonia [Unknown]
  - Leukopenia [Unknown]
  - Depression [Unknown]
  - Hypertension [Unknown]
  - Dermatitis [Unknown]
  - Fatigue [Unknown]
  - Fatigue [Unknown]
  - Pain [Unknown]
  - Pain [Unknown]
  - Arthralgia [Unknown]
  - Musculoskeletal stiffness [Unknown]
  - Stress [Unknown]
  - Poor quality sleep [Unknown]
  - Candida infection [Recovering/Resolving]
  - Arthritis [Unknown]
  - Infection [Unknown]
  - Tinea infection [Unknown]
  - Intervertebral disc degeneration [Unknown]
  - Hypercholesterolaemia [Unknown]
  - Haematuria [Unknown]
  - Hypergammaglobulinaemia benign monoclonal [Unknown]
  - Spinal column stenosis [Unknown]
  - Anxiety [Unknown]
  - Vitamin B12 deficiency [Unknown]
  - Angiopathy [Unknown]
  - Deep vein thrombosis [Unknown]
  - Insomnia [Unknown]
  - Dyspnoea [Unknown]
  - Somnolence [Unknown]
  - Headache [Unknown]
  - Drug eruption [Unknown]
  - Arthralgia [Unknown]
  - Myalgia [Unknown]
  - Joint swelling [Unknown]
  - Cough [Unknown]
  - Oropharyngeal pain [Unknown]
  - Weight increased [Unknown]
  - Injection site pain [Unknown]
  - Neutropenia [Unknown]
  - Obstruction [Unknown]
  - Lymphocytosis [Unknown]
  - Abdominal discomfort [Unknown]
  - Hypercoagulation [Unknown]
  - Protein deficiency [Unknown]
  - White blood cell count decreased [Unknown]
  - Antinuclear antibody positive [Unknown]
